FAERS Safety Report 4403710-5 (Version None)
Quarter: 2004Q3

REPORT INFORMATION
  Report Type: 
  Country: None (occurrence: None)
  Receive Date: 20040719
  Receipt Date: 20040706
  Transmission Date: 20050211
  Serious: Yes (Death, Hospitalization)
  Sender: FDA-Public Use
  Company Number: 2004-BP-05331BR

PATIENT
  Age: 78 Year
  Sex: Female

DRUGS (12)
  1. SPIRIVA [Suspect]
     Indication: CHRONIC OBSTRUCTIVE AIRWAYS DISEASE
     Dosage: 18 MCG (18 MCG, 1 KAI OAD) IH
     Route: 055
     Dates: start: 20030811, end: 20040120
  2. HIGROTON (CHLORTALIDONE) [Concomitant]
  3. FORASEQ (FORASEQ) [Concomitant]
  4. AMINOPHYLLIN [Concomitant]
  5. ALLOPURINOL [Concomitant]
  6. TEGRETOL [Concomitant]
  7. AAS (ACETYLSALICYLIC ACID) [Concomitant]
  8. OMEPRAZOLE [Concomitant]
  9. ADALAT [Concomitant]
  10. FUROSEMIDE [Concomitant]
  11. TRENTAL [Concomitant]
  12. LANITOP (METILDIGOXIN) [Concomitant]

REACTIONS (2)
  - PNEUMONIA [None]
  - RESPIRATORY FAILURE [None]
